FAERS Safety Report 5043964-8 (Version None)
Quarter: 2006Q2

REPORT INFORMATION
  Report Type: 
  Country: None (occurrence: None)
  Receive Date: 20060601
  Receipt Date: 20060418
  Transmission Date: 20061013
  Serious: No
  Sender: FDA-Public Use
  Company Number: 2006-BP-04500BP

PATIENT
  Age: 58 Year
  Sex: Female

DRUGS (4)
  1. SPIRIVA [Suspect]
     Indication: CHRONIC OBSTRUCTIVE PULMONARY DISEASE
     Dosage: 18 MCG (18 MCG 1 IN 1 D) IH
     Route: 055
     Dates: start: 20060310, end: 20060401
  2. SEREVENT [Concomitant]
  3. QVAR (BECLOMETASONE DIPROPIONATE) [Concomitant]
  4. ALBUTEROL SPIROS [Concomitant]

REACTIONS (1)
  - ALOPECIA [None]
